FAERS Safety Report 19032785 (Version 2)
Quarter: 2021Q2

REPORT INFORMATION
  Report Type: Report from Study
  Country: JP (occurrence: JP)
  Receive Date: 20210319
  Receipt Date: 20210420
  Transmission Date: 20210717
  Serious: Yes (Other)
  Sender: FDA-Public Use
  Company Number: JP-ALLERGAN-2111416US

PATIENT
  Sex: Male

DRUGS (1)
  1. BRIMONIDINE;TIMOLOL ? BP [Suspect]
     Active Substance: BRIMONIDINE TARTRATE\TIMOLOL MALEATE
     Indication: MACULAR FIBROSIS
     Dosage: 1 GTT, BID
     Route: 047
     Dates: start: 20200805, end: 20200812

REACTIONS (2)
  - Rhegmatogenous retinal detachment [Unknown]
  - Off label use [Unknown]

NARRATIVE: CASE EVENT DATE: 20201202
